FAERS Safety Report 14449187 (Version 4)
Quarter: 2018Q2

REPORT INFORMATION
  Report Type: Report from Study
  Country: None (occurrence: CH)
  Receive Date: 20180126
  Receipt Date: 20180406
  Transmission Date: 20180711
  Serious: Yes (Hospitalization, Other)
  Sender: FDA-Public Use
  Company Number: CH-ABBVIE-18K-151-2237715-00

PATIENT
  Age: 78 Year
  Sex: Male

DRUGS (3)
  1. DUODOPA [Suspect]
     Active Substance: CARBIDOPA\LEVODOPA
     Dosage: MD 4.0ML, CONTINUOUS RATE DAY 2.9ML/H, CONTINUOUS RATE NIGHT 2.1ML/H, ED1.5ML
     Route: 050
     Dates: start: 20180405
  2. DUODOPA [Suspect]
     Active Substance: CARBIDOPA\LEVODOPA
     Dosage: MD 2.9ML, CONTINUOUS RATE DAY 2.5ML/H, CONTINUOUS RATE NIGHT 2.1ML/H, ED1.5ML
     Route: 050
     Dates: end: 201804
  3. DUODOPA [Suspect]
     Active Substance: CARBIDOPA\LEVODOPA
     Indication: PARKINSON^S DISEASE
     Dosage: MD 7.0ML, CONTINUOUS RATE DAY 2.5ML/H, CONTINUOUS RATE NIGHT 2.1ML/H, ED1.5ML?24H THERAPY
     Route: 050

REACTIONS (4)
  - Pulmonary oedema [Unknown]
  - Bronchitis [Unknown]
  - Incorrect dose administered [Recovered/Resolved]
  - Pneumonia [Unknown]

NARRATIVE: CASE EVENT DATE: 2017
